FAERS Safety Report 7593106-X (Version None)
Quarter: 2011Q3

REPORT INFORMATION
  Report Type: 
  Country: None (occurrence: None)
  Receive Date: 20110706
  Receipt Date: 20110701
  Transmission Date: 20111222
  Serious: Yes (Other)
  Sender: FDA-Public Use
  Company Number: DK-TEVA-288858ISR

PATIENT
  Weight: 0.7 kg

DRUGS (2)
  1. DICLOFENAC SODIUM [Suspect]
     Dosage: 50 MG, TID
     Route: 064
  2. ATOSIBAN [Concomitant]

REACTIONS (3)
  - MATERNAL EXPOSURE DURING PREGNANCY [None]
  - PREMATURE BABY [None]
  - BRADYCARDIA [None]
